FAERS Safety Report 9001445 (Version 1)
Quarter: 2013Q1

REPORT INFORMATION
  Report Type: Spontaneous
  Country: US (occurrence: US)
  Receive Date: 20130107
  Receipt Date: 20130107
  Transmission Date: 20140127
  Serious: Yes (Death)
  Sender: FDA-Public Use
  Company Number: US-PFIZER INC-2013005709

PATIENT
  Age: 38 Year
  Sex: Male

DRUGS (7)
  1. AMLODIPINE BESILATE [Suspect]
     Dosage: UNK
     Route: 048
  2. VENLAFAXINE HCL [Suspect]
     Dosage: UNK
     Route: 048
  3. HALOPERIDOL [Suspect]
     Dosage: UNK
     Route: 048
  4. ALPRAZOLAM [Suspect]
     Dosage: UNK
     Route: 048
  5. ACETAMINOPHEN W/HYDROCODONE BITARTRATE [Suspect]
     Dosage: UNK
     Route: 048
  6. TRIAMTERENE [Suspect]
     Dosage: UNK
     Route: 048
  7. DICLOFENAC [Suspect]
     Dosage: UNK
     Route: 048

REACTIONS (1)
  - Completed suicide [Fatal]
